FAERS Safety Report 5817093-7 (Version None)
Quarter: 2008Q3

REPORT INFORMATION
  Report Type: 
  Country: None (occurrence: None)
  Receive Date: 20080722
  Receipt Date: 20080714
  Transmission Date: 20090109
  Serious: Yes (Other)
  Sender: FDA-Public Use
  Company Number: US-PURDUE-USA_2008_0033925

PATIENT
  Age: 47 Year
  Sex: Female

DRUGS (8)
  1. OXYCONTIN [Suspect]
     Indication: PAIN
     Dosage: 50 MG, BID
  2. XANAX [Suspect]
     Indication: DRUG USE FOR UNKNOWN INDICATION
     Dosage: 2 MG, TID
  3. ROXICODONE [Suspect]
     Indication: DRUG USE FOR UNKNOWN INDICATION
     Dosage: 30 MG, QID
  4. SOMA [Suspect]
     Indication: DRUG USE FOR UNKNOWN INDICATION
     Dosage: 4 TABLET, DAILY
  5. WELLBUTRIN [Suspect]
     Indication: DRUG USE FOR UNKNOWN INDICATION
     Dosage: 3 TABLET, DAILY
  6. ADDERALL 10 [Suspect]
     Indication: DRUG USE FOR UNKNOWN INDICATION
  7. ACETYLSALICYLIC ACID SRT [Suspect]
     Indication: DRUG USE FOR UNKNOWN INDICATION
  8. YASMIN [Suspect]
     Indication: CONTRACEPTION

REACTIONS (2)
  - PYREXIA [None]
  - SUICIDAL IDEATION [None]
